FAERS Safety Report 16861219 (Version 1)
Quarter: 2019Q3

REPORT INFORMATION
  Report Type: Spontaneous
  Country: IT (occurrence: IT)
  Receive Date: 20190927
  Receipt Date: 20190927
  Transmission Date: 20191005
  Serious: Yes (Other)
  Sender: FDA-Public Use
  Company Number: IT-TEVA-2019-IT-1113636

PATIENT
  Age: 48 Year
  Sex: Male

DRUGS (2)
  1. PREDNISONE TEVA 5 MG COMPRESSE [Concomitant]
     Dosage: 7.5 MG
     Route: 048
  2. METHOTREXATE 15 MG/2 ML SOLUZIONE INIETTABILE [Suspect]
     Active Substance: METHOTREXATE
     Indication: RHEUMATOID ARTHRITIS
     Dosage: 15 MG PER 1 WEEK; 15 MG / 2 ML
     Route: 030
     Dates: start: 20190801, end: 20190831

REACTIONS (3)
  - Drug ineffective [Recovering/Resolving]
  - Rheumatoid arthritis [Recovering/Resolving]
  - Nausea [Recovering/Resolving]

NARRATIVE: CASE EVENT DATE: 20190905
